FAERS Safety Report 26045082 (Version 1)
Quarter: 2025Q4

REPORT INFORMATION
  Report Type: Report from Study
  Country: EU (occurrence: EU)
  Receive Date: 20251114
  Receipt Date: 20251114
  Transmission Date: 20260118
  Serious: Yes (Hospitalization)
  Sender: ABBVIE
  Company Number: EU-ABBVIE-6542508

PATIENT
  Age: 65 Year
  Sex: Female
  Weight: 66.7 kg

DRUGS (17)
  1. FOSCARBIDOPA\FOSLEVODOPA [Suspect]
     Active Substance: FOSCARBIDOPA\FOSLEVODOPA
     Indication: Parkinson^s disease
     Dosage: CONTINUOUS RATE PUMP SETTING BASE 0.27 ML/H?CONTINUOUS RATE PUMP SETTING HIGH 0.29 ML/H?CONTINUOU...
     Route: 058
     Dates: start: 20241008, end: 20241010
  2. FOSCARBIDOPA\FOSLEVODOPA [Suspect]
     Active Substance: FOSCARBIDOPA\FOSLEVODOPA
     Dosage: CONTINUOUS RATE PUMP SETTING BASE 0.31 ML/H?CONTINUOUS RATE PUMP SETTING HIGH 0.33 ML/H?CONTINUOU...
     Route: 058
     Dates: start: 20241011, end: 20241016
  3. FOSCARBIDOPA\FOSLEVODOPA [Suspect]
     Active Substance: FOSCARBIDOPA\FOSLEVODOPA
     Dosage: CONTINUOUS RATE PUMP SETTING BASE 0.35 ML/H?CONTINUOUS RATE PUMP SETTING HIGH 0.38 ML/H?CONTINUOU...
     Route: 058
     Dates: start: 20241017, end: 20241111
  4. FOSCARBIDOPA\FOSLEVODOPA [Suspect]
     Active Substance: FOSCARBIDOPA\FOSLEVODOPA
     Dosage: CONTINUOUS RATE PUMP SETTING BASE 0.39 ML/H?CONTINUOUS RATE PUMP SETTING HIGH 0.42 ML/H?CONTINUOU...
     Route: 058
     Dates: start: 20241112, end: 20250101
  5. FOSCARBIDOPA\FOSLEVODOPA [Suspect]
     Active Substance: FOSCARBIDOPA\FOSLEVODOPA
     Dosage: CONTINUOUS RATE PUMP SETTING BASE 0.38 ML/H?CONTINUOUS RATE PUMP SETTING HIGH 0.41 ML/H?CONTINUOU...
     Route: 058
     Dates: start: 20250102, end: 20250121
  6. FOSCARBIDOPA\FOSLEVODOPA [Suspect]
     Active Substance: FOSCARBIDOPA\FOSLEVODOPA
     Dosage: CONTINUOUS RATE PUMP SETTING BASE 0.32 ML/H?CONTINUOUS RATE PUMP SETTING HIGH 0.41 ML/H?CONTINUOU...
     Route: 058
     Dates: start: 20250122, end: 20250123
  7. FOSCARBIDOPA\FOSLEVODOPA [Suspect]
     Active Substance: FOSCARBIDOPA\FOSLEVODOPA
     Dosage: CONTINUOUS RATE PUMP SETTING BASE 0.24 ML/H?CONTINUOUS RATE PUMP SETTING HIGH 0.41 ML/H?CONTINUOU...
     Route: 058
     Dates: start: 20250124, end: 20250225
  8. FOSCARBIDOPA\FOSLEVODOPA [Suspect]
     Active Substance: FOSCARBIDOPA\FOSLEVODOPA
     Dosage: CONTINUOUS RATE PUMP SETTING BASE 0.38 ML/H?CONTINUOUS RATE PUMP SETTING HIGH 0.3 ML/H?CONTINUOUS...
     Route: 058
     Dates: start: 20250226, end: 20250410
  9. FOSCARBIDOPA\FOSLEVODOPA [Suspect]
     Active Substance: FOSCARBIDOPA\FOSLEVODOPA
     Dosage: CONTINUOUS RATE PUMP SETTING BASE 0.32 ML/H?CONTINUOUS RATE PUMP SETTING HIGH 0.38 ML/H?CONTINUOU...
     Route: 058
     Dates: start: 20250411
  10. TRAZODONE HYDROCHLORIDE [Concomitant]
     Active Substance: TRAZODONE HYDROCHLORIDE
     Indication: Depression
     Route: 048
     Dates: start: 200409
  11. OLODATEROL HYDROCHLORIDE\TIOTROPIUM BROMIDE MONOHYDRATE [Concomitant]
     Active Substance: OLODATEROL HYDROCHLORIDE\TIOTROPIUM BROMIDE MONOHYDRATE
     Indication: Chronic obstructive pulmonary disease
     Dosage: 1 PUFF, ONCE
     Route: 055
  12. ASCORBIC ACID\CALCIUM PHOSPHATE\CHOLECALCIFEROL\CITRIC ACID MONOHYDRAT [Concomitant]
     Active Substance: ASCORBIC ACID\CALCIUM PHOSPHATE\CHOLECALCIFEROL\CITRIC ACID MONOHYDRATE
     Indication: Osteoporosis
     Dosage: (500 MG CALCIUM/ 800 IU COLECALCIFEROL)
     Route: 048
  13. ESCITALOPRAM [Concomitant]
     Active Substance: ESCITALOPRAM OXALATE
     Indication: Depression
     Route: 048
  14. BISOPROLOL [Concomitant]
     Active Substance: BISOPROLOL
     Indication: Hypertension
     Route: 048
  15. PANTOPRAZOLE SODIUM [Concomitant]
     Active Substance: PANTOPRAZOLE SODIUM
     Indication: Prophylaxis
     Route: 048
  16. SIMVASTATIN [Concomitant]
     Active Substance: SIMVASTATIN
     Indication: Hyperlipidaemia
     Route: 048
  17. CHOLECALCIFEROL [Concomitant]
     Active Substance: CHOLECALCIFEROL
     Indication: Vitamin D deficiency
     Dosage: 35 GTT
     Route: 048

REACTIONS (1)
  - Abdominal abscess [Recovered/Resolved]

NARRATIVE: CASE EVENT DATE: 20250417
